FAERS Safety Report 7265483-0 (Version None)
Quarter: 2011Q1

REPORT INFORMATION
  Report Type: 
  Country: None (occurrence: None)
  Receive Date: 20110131
  Receipt Date: 20110120
  Transmission Date: 20110831
  Serious: Yes (Hospitalization)
  Sender: FDA-Public Use
  Company Number: PHHO2011GB01441

PATIENT
  Sex: Male

DRUGS (5)
  1. BLINDED ENALAPRIL [Suspect]
     Indication: CARDIAC FAILURE
     Dosage: CODE NOT BROKEN
     Route: 048
     Dates: start: 20090730
  2. BLINDED NO TREATMENT RECEIVED [Suspect]
     Indication: CARDIAC FAILURE
     Dosage: CODE NOT BROKEN
     Route: 048
     Dates: start: 20090730
  3. BLINDED ALISKIREN [Suspect]
     Indication: CARDIAC FAILURE
     Dosage: CODE NOT BROKEN
     Route: 048
     Dates: start: 20090730
  4. COMPARATOR ENALAPRIL [Suspect]
     Indication: CARDIAC FAILURE
     Route: 048
  5. ALISKIREN [Suspect]
     Indication: CARDIAC FAILURE
     Route: 048

REACTIONS (2)
  - DISEASE PROGRESSION [None]
  - CARDIAC FAILURE [None]
